FAERS Safety Report 6219956-X (Version None)
Quarter: 2009Q2

REPORT INFORMATION
  Report Type: 
  Country: None (occurrence: None)
  Receive Date: 20090609
  Receipt Date: 20090320
  Transmission Date: 20091009
  Serious: No
  Sender: FDA-Public Use
  Company Number: US-BAYER-200917369NA

PATIENT
  Age: 11 Year
  Sex: Male
  Weight: 50 kg

DRUGS (1)
  1. ULTRAVIST 370 [Suspect]
     Indication: COMPUTERISED TOMOGRAM ABDOMEN
     Dosage: TOTAL DAILY DOSE: 110 ML  UNIT DOSE: 500 ML
     Route: 042
     Dates: start: 20090317, end: 20090317

REACTIONS (1)
  - RASH [None]
